FAERS Safety Report 5366890-3 (Version None)
Quarter: 2007Q2

REPORT INFORMATION
  Report Type: 
  Country: None (occurrence: None)
  Receive Date: 20070622
  Receipt Date: 20061207
  Transmission Date: 20071010
  Serious: No
  Sender: FDA-Public Use
  Company Number: US-ASTRAZENECA-2006UW27215

PATIENT
  Sex: Female

DRUGS (2)
  1. RHINOCORT [Suspect]
     Indication: HYPERSENSITIVITY
     Route: 045
     Dates: start: 20061023, end: 20061118
  2. RHINOCORT [Suspect]
     Indication: RESPIRATORY DISORDER
     Route: 045
     Dates: start: 20061023, end: 20061118

REACTIONS (1)
  - DYSGEUSIA [None]
